FAERS Safety Report 16353848 (Version 2)
Quarter: 2020Q4

REPORT INFORMATION
  Report Type: Spontaneous
  Country: US (occurrence: US)
  Receive Date: 20190524
  Receipt Date: 20201124
  Transmission Date: 20210113
  Serious: Yes (Hospitalization)
  Sender: FDA-Public Use
  Company Number: US-JNJFOC-20190527558

PATIENT
  Sex: Male

DRUGS (1)
  1. STELARA [Suspect]
     Active Substance: USTEKINUMAB
     Indication: CROHN^S DISEASE
     Route: 058
     Dates: start: 2017

REACTIONS (4)
  - Staphylococcal infection [Unknown]
  - Surgery [Unknown]
  - Wound [Unknown]
  - Clostridium difficile infection [Unknown]

NARRATIVE: CASE EVENT DATE: 2019
